FAERS Safety Report 17281555 (Version 1)
Quarter: 2020Q1

REPORT INFORMATION
  Report Type: Spontaneous
  Country: US (occurrence: US)
  Receive Date: 20191227
  Receipt Date: 20191227
  Transmission Date: 20200409
  Serious: No
  Sender: FDA-Public Use
  Company Number: None

PATIENT
  Age: 71 Year
  Sex: Male
  Weight: 92.99 kg

DRUGS (3)
  1. LISINOPRIL. [Concomitant]
     Active Substance: LISINOPRIL
  2. LOW DOSE BABY ASPIRIN [Concomitant]
  3. LAMOTRIGINE (150MG) [Suspect]
     Active Substance: LAMOTRIGINE
     Indication: DEPRESSION
     Dosage: ?          QUANTITY:1 DF DOSAGE FORM;?
     Route: 048
     Dates: start: 20181125

REACTIONS (1)
  - Erection increased [None]

NARRATIVE: CASE EVENT DATE: 20190508
